FAERS Safety Report 9343165 (Version 1)
Quarter: 2013Q2

REPORT INFORMATION
  Report Type: Other
  Country: IT (occurrence: IT)
  Receive Date: 20130611
  Receipt Date: 20130611
  Transmission Date: 20140414
  Serious: Yes (Other)
  Sender: FDA-Public Use
  Company Number: IT-WATSON-2013-10760

PATIENT
  Sex: Male
  Weight: 62 kg

DRUGS (4)
  1. ETOPOSIDE (UNKNOWN) [Suspect]
     Indication: TESTIS CANCER
     Dosage: 120 MG/M2, EVERY TRIMESTER
     Route: 042
     Dates: start: 20130508, end: 20130510
  2. CARBOPLATIN (UNKNOWN) [Suspect]
     Indication: TESTIS CANCER
     Dosage: 300 MG/M2, EVERY TRIMESTER
     Route: 042
     Dates: start: 20130509, end: 20130509
  3. PACLITAXEL (UNKNOWN) [Suspect]
     Indication: TESTIS CANCER
     Dosage: 150 MG, EVERY TRIMESTER
     Route: 042
     Dates: start: 20130509, end: 20130509
  4. IFOSFAMIDE [Suspect]
     Indication: TESTIS CANCER
     Dosage: 5000 MG/M2, EVERY TRIMESTER
     Route: 042
     Dates: start: 20130508, end: 20130508

REACTIONS (1)
  - Mucosal inflammation [Not Recovered/Not Resolved]
